FAERS Safety Report 5130881-8 (Version None)
Quarter: 2006Q4

REPORT INFORMATION
  Report Type: 
  Country: None (occurrence: None)
  Receive Date: 20061019
  Receipt Date: 20061009
  Transmission Date: 20070319
  Serious: Yes (Other)
  Sender: FDA-Public Use
  Company Number: GBWYE163209OCT06

PATIENT
  Age: 60 Year
  Sex: Male

DRUGS (1)
  1. ETANERCEPT [Suspect]
     Indication: PSORIASIS
     Dosage: 50MG FREQUENCY UNKNOWN
     Dates: start: 20060401

REACTIONS (2)
  - LIVER FUNCTION TEST ABNORMAL [None]
  - NEUROPATHY [None]
